FAERS Safety Report 14969679 (Version 1)
Quarter: 2018Q2

REPORT INFORMATION
  Report Type: Spontaneous
  Country: US (occurrence: US)
  Receive Date: 20180604
  Receipt Date: 20180604
  Transmission Date: 20180711
  Serious: No
  Sender: FDA-Public Use
  Company Number: US-OTSUKA-2018_011187

PATIENT
  Age: 89 Year
  Sex: Female

DRUGS (2)
  1. SAMSCA [Suspect]
     Active Substance: TOLVAPTAN
     Indication: HYPONATRAEMIA
  2. SAMSCA [Suspect]
     Active Substance: TOLVAPTAN
     Indication: BLOOD SODIUM INCREASED
     Dosage: 30 MG, QD
     Route: 048
     Dates: start: 20180412

REACTIONS (2)
  - Constipation [Not Recovered/Not Resolved]
  - Thirst [Not Recovered/Not Resolved]

NARRATIVE: CASE EVENT DATE: 201804
